FAERS Safety Report 22304137 (Version 1)
Quarter: 2023Q2

REPORT INFORMATION
  Report Type: Spontaneous
  Country: US (occurrence: None)
  Receive Date: 20230509
  Receipt Date: 20230509
  Transmission Date: 20230722
  Serious: Yes (Hospitalization)
  Sender: FDA-Public Use
  Company Number: None

PATIENT
  Age: 67 Year
  Sex: Male
  Weight: 102.5 kg

DRUGS (2)
  1. AZACITIDINE [Suspect]
     Active Substance: AZACITIDINE
     Indication: Myelodysplastic syndrome
     Dosage: FREQUENCY : DAILY;?
     Route: 041
     Dates: start: 20230410, end: 20230416
  2. VENETOCLAX [Suspect]
     Active Substance: VENETOCLAX
     Indication: Myelodysplastic syndrome
     Dosage: FREQUENCY : TWICE A DAY;?
     Route: 048
     Dates: start: 20230410, end: 20230423

REACTIONS (7)
  - Hemiparesis [None]
  - Fall [None]
  - Head injury [None]
  - Loss of consciousness [None]
  - Carotid artery stenosis [None]
  - Carotid arteriosclerosis [None]
  - Vertebral artery arteriosclerosis [None]

NARRATIVE: CASE EVENT DATE: 20230501
